FAERS Safety Report 9168687 (Version 1)
Quarter: 2013Q1

REPORT INFORMATION
  Report Type: Spontaneous
  Country: US (occurrence: US)
  Receive Date: 20130318
  Receipt Date: 20130318
  Transmission Date: 20140127
  Serious: Yes (Other)
  Sender: FDA-Public Use
  Company Number: US-PFIZER INC-2013089085

PATIENT
  Age: 40 Year
  Sex: Female
  Weight: 56.69 kg

DRUGS (3)
  1. PRISTIQ [Suspect]
     Indication: MAJOR DEPRESSION
     Dosage: 50 MG, 1X/DAY
     Route: 048
     Dates: start: 201111, end: 20120127
  2. PRISTIQ [Suspect]
     Dosage: 100 MG, 1X/DAY
     Route: 048
     Dates: start: 20120128, end: 201303
  3. PRISTIQ [Suspect]
     Dosage: 50 MG, 1X/DAY
     Route: 048
     Dates: start: 201303

REACTIONS (7)
  - Depression [Unknown]
  - Loss of employment [Unknown]
  - Job dissatisfaction [Unknown]
  - Speech disorder [Unknown]
  - Blood pressure increased [Unknown]
  - Pain [Unknown]
  - Vitamin D decreased [Unknown]
